FAERS Safety Report 9384926 (Version 1)
Quarter: 2013Q3

REPORT INFORMATION
  Report Type: Spontaneous
  Country: BR (occurrence: BR)
  Receive Date: 20130705
  Receipt Date: 20130705
  Transmission Date: 20140515
  Serious: Yes (Other)
  Sender: FDA-Public Use
  Company Number: BR-ELI_LILLY_AND_COMPANY-BR201306007989

PATIENT
  Sex: Female

DRUGS (1)
  1. HUMAN INSULIN (RDNA ORIGIN) NPH [Suspect]
     Dosage: UNK, UNKNOWN
     Route: 065

REACTIONS (2)
  - Hyperglycaemia [Unknown]
  - Feeling abnormal [Unknown]
